FAERS Safety Report 25886746 (Version 1)
Quarter: 2025Q4

REPORT INFORMATION
  Report Type: Spontaneous
  Country: US (occurrence: None)
  Receive Date: 20251002
  Receipt Date: 20251002
  Transmission Date: 20260118
  Serious: Yes (Hospitalization, Other)
  Sender: FDA-CTU
  Company Number: None

PATIENT
  Age: 52 Year
  Sex: Male
  Weight: 74.84 kg

DRUGS (2)
  1. .DELTA.8-TETRAHYDROCANNABINOL\HERBALS [Suspect]
     Active Substance: .DELTA.8-TETRAHYDROCANNABINOL\HERBALS
     Indication: Diabetes mellitus
     Dates: start: 20250701, end: 20250929
  2. CANNABINOID Hemp products [Concomitant]

REACTIONS (7)
  - Confusional state [None]
  - Cognitive disorder [None]
  - Insomnia [None]
  - Paranoia [None]
  - Cachexia [None]
  - Decreased appetite [None]
  - Memory impairment [None]

NARRATIVE: CASE EVENT DATE: 20251002
